FAERS Safety Report 4885576-2 (Version None)
Quarter: 2006Q1

REPORT INFORMATION
  Report Type: 
  Country: None (occurrence: None)
  Receive Date: 20060119
  Receipt Date: 20051005
  Transmission Date: 20060701
  Serious: Yes (Death)
  Sender: FDA-Public Use
  Company Number: US-MERCK-0510USA05565

PATIENT
  Age: 54 Year
  Sex: Male
  Weight: 107 kg

DRUGS (11)
  1. VIOXX [Suspect]
     Indication: PAIN
     Route: 048
     Dates: start: 20020419, end: 20040228
  2. CELEXA [Concomitant]
     Route: 065
  3. COUMADIN [Concomitant]
     Route: 065
  4. FUROSEMIDE [Concomitant]
     Route: 065
  5. GLUCOSAMINE [Concomitant]
     Route: 065
  6. IRON (UNSPECIFIED) [Concomitant]
     Route: 065
  7. ISOSORBIDE [Concomitant]
     Route: 065
  8. K-DUR 10 [Concomitant]
     Route: 065
  9. LIPITOR [Concomitant]
     Route: 065
  10. PLAVIX [Concomitant]
     Route: 065
  11. NITROGLYCERIN [Concomitant]
     Route: 065

REACTIONS (4)
  - CARDIAC FAILURE [None]
  - CARDIOVASCULAR DISORDER [None]
  - DEATH [None]
  - DEEP VEIN THROMBOSIS [None]
